FAERS Safety Report 21394613 (Version 5)
Quarter: 2023Q1

REPORT INFORMATION
  Report Type: Report from Study
  Country: US (occurrence: US)
  Receive Date: 20220930
  Receipt Date: 20230210
  Transmission Date: 20230417
  Serious: No
  Sender: FDA-Public Use
  Company Number: US-NOVARTISTESTPH-NVSC2022US221328

PATIENT
  Sex: Female

DRUGS (2)
  1. PROMACTA [Suspect]
     Active Substance: ELTROMBOPAG OLAMINE
     Indication: Product used for unknown indication
     Dosage: UNK
     Route: 065
  2. PROMACTA [Suspect]
     Active Substance: ELTROMBOPAG OLAMINE
     Dosage: 12.5 MG, QD
     Route: 065

REACTIONS (8)
  - Dry skin [Unknown]
  - Pruritus [Unknown]
  - Taste disorder [Unknown]
  - Fatigue [Unknown]
  - Myalgia [Unknown]
  - Platelet count increased [Unknown]
  - Alopecia [Unknown]
  - Pain in extremity [Unknown]
